FAERS Safety Report 14452637 (Version 1)
Quarter: 2018Q1

REPORT INFORMATION
  Report Type: Spontaneous
  Country: US (occurrence: US)
  Receive Date: 20180129
  Receipt Date: 20180129
  Transmission Date: 20180509
  Serious: Yes (Death, Other)
  Sender: FDA-Public Use
  Company Number: PHEH2018US002429

PATIENT
  Age: 58 Year
  Sex: Female
  Weight: 90 kg

DRUGS (7)
  1. LIDOCAINE. [Suspect]
     Active Substance: LIDOCAINE
     Indication: MEDICATION DILUTION
  2. LIDOCAINE. [Suspect]
     Active Substance: LIDOCAINE
     Indication: SINUSITIS
     Dosage: UNK, DILUTE WITH CEFTRIAXONE, IN LEFT BUTTOCK
     Route: 030
     Dates: start: 20150602
  3. EPIPEN [Suspect]
     Active Substance: EPINEPHRINE
     Indication: ANAPHYLACTIC REACTION
     Dosage: 0.3 MG, QD
     Route: 030
     Dates: start: 20150602
  4. VITAMIN B12 [Suspect]
     Active Substance: CYANOCOBALAMIN
     Indication: FATIGUE
     Dosage: 1000 UG, ONCE, FOR A WHILE INTO LEFT SHOULDER
     Route: 030
     Dates: start: 20150602
  5. VITAMIN B12 [Suspect]
     Active Substance: CYANOCOBALAMIN
     Dosage: 1000 UG, UNK
     Route: 065
  6. CEFTRIAXONE SANDOZ [Suspect]
     Active Substance: CEFTRIAXONE
     Indication: SINUSITIS
     Dosage: 1 G, ONCE/SINGLE, LEFT BUTTOCK
     Route: 030
     Dates: start: 20150602
  7. DEPO-MEDROL [Suspect]
     Active Substance: METHYLPREDNISOLONE ACETATE
     Indication: SINUSITIS
     Dosage: 100 MG, ONCE, RIGHT BUTTOCK
     Route: 030
     Dates: start: 20150602

REACTIONS (11)
  - Anaphylactic shock [Fatal]
  - Unresponsive to stimuli [Fatal]
  - Pruritus [Fatal]
  - Condition aggravated [Fatal]
  - Rash generalised [Fatal]
  - Anaphylactic reaction [Fatal]
  - Blindness [Fatal]
  - Loss of consciousness [Fatal]
  - Sinusitis [Unknown]
  - Cardiac arrest [Fatal]
  - Injection site pruritus [Unknown]

NARRATIVE: CASE EVENT DATE: 20150602
